FAERS Safety Report 18579951 (Version 1)
Quarter: 2020Q4

REPORT INFORMATION
  Report Type: Spontaneous
  Country: US (occurrence: US)
  Receive Date: 20201204
  Receipt Date: 20201204
  Transmission Date: 20210114
  Serious: No
  Sender: FDA-Public Use
  Company Number: US-009507513-2011USA016951

PATIENT
  Age: 44 Year
  Sex: Female

DRUGS (1)
  1. NEXPLANON [Suspect]
     Active Substance: ETONOGESTREL
     Indication: CONTRACEPTION
     Dosage: 1 IMPLANT (68 MG), ONE TIME
     Route: 059
     Dates: start: 201812, end: 202003

REACTIONS (1)
  - Rash [Unknown]

NARRATIVE: CASE EVENT DATE: 202003
